FAERS Safety Report 9290090 (Version 4)
Quarter: 2015Q1

REPORT INFORMATION
  Report Type: Report from Study
  Country: MX (occurrence: MX)
  Receive Date: 20130515
  Receipt Date: 20150127
  Transmission Date: 20150721
  Serious: Yes (Hospitalization, Other)
  Sender: FDA-Public Use
  Company Number: PHHY2013MX047453

PATIENT
  Age: 87 Year
  Sex: Female

DRUGS (12)
  1. ZELMAC [Suspect]
     Active Substance: TEGASEROD
     Indication: BOWEL MOVEMENT IRREGULARITY
     Dosage: UNK UKN, UNK
     Dates: start: 20110830
  2. EUTIROX [Concomitant]
     Active Substance: LEVOTHYROXINE SODIUM
     Indication: THYROID DISORDER
     Dosage: 1 DF, DAILY
     Dates: start: 1993
  3. PANTOZOL [Concomitant]
     Active Substance: PANTOPRAZOLE SODIUM
     Indication: GASTRITIS PROPHYLAXIS
     Dosage: 2 DF, DAILY
     Dates: start: 201101
  4. NOVOTIRAL [Concomitant]
     Active Substance: LEVOTHYROXINE
     Indication: HYPOTHYROIDISM
     Route: 065
  5. ATACAND [Concomitant]
     Active Substance: CANDESARTAN CILEXETIL
     Indication: HYPERTENSION
     Dosage: 16 MG, UNK
     Route: 065
     Dates: start: 2009
  6. SPIRIVA [Concomitant]
     Active Substance: TIOTROPIUM BROMIDE MONOHYDRATE
     Indication: PRODUCT USED FOR UNKNOWN INDICATION
     Dosage: 1 OT, QD (9 YEARS AGO)
     Route: 065
  7. OXYGEN. [Concomitant]
     Active Substance: OXYGEN
     Dosage: UNK UKN, UNK
     Dates: start: 2013
  8. ONBREZ [Suspect]
     Active Substance: INDACATEROL
     Indication: CHRONIC OBSTRUCTIVE PULMONARY DISEASE
     Dosage: 150 UG, DAILY
     Route: 055
     Dates: start: 20120501, end: 20141222
  9. NORVASC [Concomitant]
     Active Substance: AMLODIPINE BESYLATE
     Indication: HYPERTENSION
     Dosage: 5 MG, UNK
     Route: 065
     Dates: start: 2007
  10. PLANTABEN//PLANTAGO OVATA [Concomitant]
     Dosage: UNK UKN, UNK
     Dates: start: 201101
  11. OXYGEN. [Concomitant]
     Active Substance: OXYGEN
     Dosage: UNK UKN, UNK
     Dates: start: 2010, end: 2013
  12. MIFLONIDE [Suspect]
     Active Substance: BUDESONIDE
     Indication: BRONCHIAL DISORDER
     Dosage: 200 OT, BID
     Route: 065
     Dates: start: 201205

REACTIONS (6)
  - Aspiration bronchial [Recovered/Resolved]
  - Bronchitis [Recovered/Resolved]
  - Intestinal obstruction [Not Recovered/Not Resolved]
  - Bronchial obstruction [Recovered/Resolved]
  - Pneumonia [Recovering/Resolving]
  - Drug administered to patient of inappropriate age [Unknown]

NARRATIVE: CASE EVENT DATE: 201303
